FAERS Safety Report 14491905 (Version 1)
Quarter: 2018Q1

REPORT INFORMATION
  Report Type: Spontaneous
  Country: US (occurrence: US)
  Receive Date: 20180206
  Receipt Date: 20180206
  Transmission Date: 20180509
  Serious: Yes (Death, Hospitalization, Other)
  Sender: FDA-Public Use
  Company Number: US-ASTELLAS-2018US006577

PATIENT
  Age: 47 Year
  Sex: Female

DRUGS (1)
  1. TACROLIMUS. [Suspect]
     Active Substance: TACROLIMUS
     Indication: LIVER TRANSPLANT
     Dosage: UNK UNK, UNKNOWN FREQ.
     Route: 065

REACTIONS (10)
  - Pulmonary hypertension [Unknown]
  - Death [Fatal]
  - Acute right ventricular failure [Unknown]
  - Hypotension [Unknown]
  - Ascites [Unknown]
  - Cardiac failure [Unknown]
  - Right ventricular dysfunction [Unknown]
  - Right ventricular dilatation [Unknown]
  - Portopulmonary hypertension [Unknown]
  - Abdominal distension [Unknown]
